FAERS Safety Report 5258631-5 (Version None)
Quarter: 2007Q1

REPORT INFORMATION
  Report Type: 
  Country: None (occurrence: None)
  Receive Date: 20070308
  Receipt Date: 20070228
  Transmission Date: 20070707
  Serious: Yes (Hospitalization, Disabling)
  Sender: FDA-Public Use
  Company Number: DK-ROCHE-484752

PATIENT
  Age: 58 Year
  Sex: Female
  Weight: 63 kg

DRUGS (1)
  1. BONVIVA [Suspect]
     Indication: OSTEOPOROSIS
     Route: 048
     Dates: start: 20060511, end: 20061211

REACTIONS (6)
  - CHEST DISCOMFORT [None]
  - DISTURBANCE IN ATTENTION [None]
  - HEADACHE [None]
  - HERPES ZOSTER [None]
  - HYPERSENSITIVITY [None]
  - MYALGIA [None]
